FAERS Safety Report 8435584-X (Version None)
Quarter: 2012Q2

REPORT INFORMATION
  Report Type: 
  Country: None (occurrence: None)
  Receive Date: 20120614
  Receipt Date: 20120606
  Transmission Date: 20120825
  Serious: Yes (Hospitalization, Other)
  Sender: FDA-Public Use
  Company Number: US-ASTRAZENECA-2011SE32251

PATIENT
  Age: 64 Year
  Sex: Female
  Weight: 90.7 kg

DRUGS (25)
  1. NEXIUM [Suspect]
     Dosage: TWICE A DAY
     Route: 048
  2. NEXIUM [Suspect]
     Dosage: 1 TIME A DAY
     Route: 048
     Dates: start: 20010909, end: 20020101
  3. NEXIUM [Suspect]
     Route: 048
     Dates: start: 20080924
  4. NEXIUM [Suspect]
     Route: 048
     Dates: start: 20080924
  5. BENICAR [Concomitant]
     Indication: BLOOD PRESSURE
  6. VICODIN [Concomitant]
  7. NEXIUM [Suspect]
     Indication: GASTROOESOPHAGEAL REFLUX DISEASE
     Dosage: TWICE A DAY
     Route: 048
  8. NEXIUM [Suspect]
     Dosage: 1 TIME A DAY
     Route: 048
     Dates: start: 20010909, end: 20020101
  9. CALCIUM [Concomitant]
     Indication: OSTEOPOROSIS
  10. VITAMIN TAB [Concomitant]
  11. NEXIUM [Suspect]
     Route: 048
     Dates: start: 20080729
  12. ZANTAC [Concomitant]
     Dosage: 1 TIME FOR 3 WEEKS
     Dates: start: 19930101
  13. PREMPRO [Concomitant]
     Dates: start: 20020613
  14. PHAZYM [Concomitant]
     Dosage: POST MEALS
  15. VITAMIN D [Concomitant]
     Indication: OSTEOPOROSIS
  16. NEXIUM [Suspect]
     Route: 048
     Dates: start: 20020613
  17. NEXIUM [Suspect]
     Route: 048
     Dates: start: 20020613
  18. BENICAR [Concomitant]
     Dates: start: 20110216
  19. BENICAR [Concomitant]
     Dates: start: 20080729
  20. NEXIUM [Suspect]
     Dosage: 2 TIMES A DAY
     Route: 048
     Dates: start: 20021102, end: 20120101
  21. NEXIUM [Suspect]
     Dosage: 2 TIMES A DAY
     Route: 048
     Dates: start: 20021102, end: 20120101
  22. NEXIUM [Suspect]
     Route: 048
     Dates: start: 20080729
  23. ACETAMINOPHEN [Concomitant]
     Indication: ARTHRITIS
     Dates: start: 20090312
  24. ACIPHEX [Concomitant]
     Dosage: 1 TIME A DAY/20 MG QD BEFORE BREAKFAST
     Dates: start: 20020613
  25. HYDROCODONE [Concomitant]

REACTIONS (13)
  - UPPER LIMB FRACTURE [None]
  - OSTEOPOROSIS [None]
  - ARTHRITIS [None]
  - VITAMIN D DEFICIENCY [None]
  - OSTEOARTHRITIS [None]
  - FOOT FRACTURE [None]
  - CERVICAL SPINAL STENOSIS [None]
  - LIGAMENT SPRAIN [None]
  - WRIST FRACTURE [None]
  - CALCIUM DEFICIENCY [None]
  - MENISCUS LESION [None]
  - ANKLE FRACTURE [None]
  - SPONDYLITIS [None]
